FAERS Safety Report 17463372 (Version 2)
Quarter: 2020Q3

REPORT INFORMATION
  Report Type: Spontaneous
  Country: US (occurrence: US)
  Receive Date: 20200226
  Receipt Date: 20200825
  Transmission Date: 20201102
  Serious: No
  Sender: FDA-Public Use
  Company Number: US-BIOGEN-2020BI00843202

PATIENT
  Age: 62 Year
  Sex: Male

DRUGS (1)
  1. TECFIDERA [Suspect]
     Active Substance: DIMETHYL FUMARATE
     Indication: MULTIPLE SCLEROSIS
     Route: 048
     Dates: start: 20171018

REACTIONS (5)
  - Fluid overload [Unknown]
  - Secondary progressive multiple sclerosis [Unknown]
  - White blood cell count decreased [Unknown]
  - Renal function test abnormal [Unknown]
  - Flushing [Unknown]

NARRATIVE: CASE EVENT DATE: 20200224
